FAERS Safety Report 13611863 (Version 1)
Quarter: 2017Q2

REPORT INFORMATION
  Report Type: Spontaneous
  Country: US (occurrence: US)
  Receive Date: 20170605
  Receipt Date: 20170605
  Transmission Date: 20170830
  Serious: Yes (Life-Threatening, Other)
  Sender: FDA-Public Use
  Company Number: US-PFIZER INC-2017245243

PATIENT
  Age: 46 Year
  Sex: Female
  Weight: 58.96 kg

DRUGS (1)
  1. EPINEPHRINE. [Suspect]
     Active Substance: EPINEPHRINE
     Indication: ANAPHYLACTIC REACTION
     Dosage: UNK UNK, ONCE
     Route: 030
     Dates: start: 20170522, end: 20170522

REACTIONS (5)
  - Device failure [Recovered/Resolved]
  - Underdose [Recovered/Resolved]
  - Headache [Not Recovered/Not Resolved]
  - Device use issue [Recovered/Resolved]
  - Product quality issue [Recovered/Resolved]

NARRATIVE: CASE EVENT DATE: 201705
